FAERS Safety Report 11022138 (Version 8)
Quarter: 2016Q1

REPORT INFORMATION
  Report Type: Report from Study
  Country: BR (occurrence: BR)
  Receive Date: 20150413
  Receipt Date: 20160126
  Transmission Date: 20160525
  Serious: Yes (Hospitalization, Other)
  Sender: FDA-Public Use
  Company Number: BR-GLAXOSMITHKLINE-BR2015047857

PATIENT
  Age: 21 Year
  Sex: Female
  Weight: 84.8 kg

DRUGS (27)
  1. FLUCONAZOLE. [Concomitant]
     Active Substance: FLUCONAZOLE
     Indication: SEPSIS
     Route: 042
     Dates: start: 20150427, end: 20150428
  2. NORFLOXACIN [Concomitant]
     Active Substance: NORFLOXACIN
     Indication: SEPSIS
     Route: 048
     Dates: start: 20150610, end: 20150611
  3. SULFAMETHOXAZOLE-TRIMETHOPRIM (SMZ) [Concomitant]
     Active Substance: SULFAMETHOXAZOLE\TRIMETHOPRIM
     Indication: PNEUMOCYSTIS JIROVECII PNEUMONIA
     Route: 042
     Dates: start: 20150512, end: 20150513
  4. AMPICILLIN AND SULBACTAM [Concomitant]
     Active Substance: AMPICILLIN SODIUM\SULBACTAM SODIUM
     Indication: SEPSIS
     Route: 042
     Dates: start: 20150427, end: 20150429
  5. BELIMUMAB [Suspect]
     Active Substance: BELIMUMAB
     Indication: SYSTEMIC LUPUS ERYTHEMATOSUS
     Dosage: 10 MG/KG, CYC
     Route: 042
     Dates: start: 20150319, end: 20150330
  6. POLYMYXIN B. [Concomitant]
     Active Substance: POLYMYXIN B
     Indication: SEPSIS
     Route: 042
     Dates: start: 20150504, end: 20150510
  7. VANCOMYCIN [Concomitant]
     Active Substance: VANCOMYCIN
     Route: 042
     Dates: start: 20150427, end: 20150428
  8. MEROPENEM. [Concomitant]
     Active Substance: MEROPENEM
     Indication: SEPSIS
     Route: 042
     Dates: start: 20150522, end: 20150527
  9. MEROPENEM. [Concomitant]
     Active Substance: MEROPENEM
     Route: 042
     Dates: start: 20150427, end: 20150513
  10. VANCOMYCIN [Concomitant]
     Active Substance: VANCOMYCIN
     Route: 042
     Dates: start: 20150522, end: 20150525
  11. AMPHOTERICIN [Concomitant]
     Active Substance: AMPHOTERICIN B
     Route: 042
     Dates: start: 20150427, end: 20150427
  12. VANCOMYCIN [Concomitant]
     Active Substance: VANCOMYCIN
     Indication: SEPSIS
     Route: 042
     Dates: start: 20150525, end: 20150527
  13. VANCOMYCIN [Concomitant]
     Active Substance: VANCOMYCIN
     Route: 042
     Dates: start: 20150507, end: 20150508
  14. VANCOMYCIN [Concomitant]
     Active Substance: VANCOMYCIN
     Route: 042
     Dates: start: 20150502, end: 20150504
  15. AMPICILLIN [Concomitant]
     Active Substance: AMPICILLIN
     Indication: SEPSIS
     Route: 042
     Dates: start: 20150426, end: 20150427
  16. AMOXICILLIN. [Concomitant]
     Active Substance: AMOXICILLIN
     Indication: MOUTH ULCERATION
     Route: 042
     Dates: start: 20150408, end: 20150411
  17. VANCOMYCIN [Concomitant]
     Active Substance: VANCOMYCIN
     Route: 042
     Dates: start: 20150428, end: 20150507
  18. SULFAMETHOXAZOLE-TRIMETHOPRIM (SMZ) [Concomitant]
     Active Substance: SULFAMETHOXAZOLE\TRIMETHOPRIM
     Route: 042
     Dates: start: 20150507, end: 20150512
  19. ACYCLOVIR. [Concomitant]
     Active Substance: ACYCLOVIR
     Indication: SEPSIS
     Route: 042
     Dates: start: 20150427, end: 20150427
  20. AMPICILLIN AND SULBACTAM [Concomitant]
     Active Substance: AMPICILLIN SODIUM\SULBACTAM SODIUM
     Route: 042
     Dates: start: 20150427, end: 20150427
  21. MEROPENEM. [Concomitant]
     Active Substance: MEROPENEM
     Route: 042
     Dates: start: 20150522, end: 20150522
  22. AMPHOTERICIN [Concomitant]
     Active Substance: AMPHOTERICIN B
     Indication: SEPSIS
     Route: 042
     Dates: start: 20150427, end: 20150428
  23. AMOXICILLIN AND CLAVULANIC ACID [Concomitant]
     Active Substance: AMOXICILLIN\CLAVULANIC ACID
     Indication: SEPSIS
     Route: 042
     Dates: start: 20150408, end: 20150411
  24. FLUCONAZOLE. [Concomitant]
     Active Substance: FLUCONAZOLE
     Indication: FUNGAL INFECTION
     Dosage: 200 MG, TID
     Route: 042
     Dates: start: 20150408, end: 20150414
  25. FLUCONAZOLE. [Concomitant]
     Active Substance: FLUCONAZOLE
     Indication: MOUTH ULCERATION
     Dosage: 100 MG, 1D
     Route: 048
     Dates: start: 20150609, end: 20150611
  26. VANCOMYCIN [Concomitant]
     Active Substance: VANCOMYCIN
     Route: 042
     Dates: start: 20150522, end: 20150524
  27. CEFEPIME [Concomitant]
     Active Substance: CEFEPIME HYDROCHLORIDE
     Indication: SEPSIS
     Route: 042
     Dates: start: 20150426, end: 20150427

REACTIONS (2)
  - Oral viral infection [Recovered/Resolved]
  - Cytomegalovirus infection [Recovered/Resolved]

NARRATIVE: CASE EVENT DATE: 20150408
